FAERS Safety Report 5742402-7 (Version None)
Quarter: 2008Q2

REPORT INFORMATION
  Report Type: 
  Country: None (occurrence: None)
  Receive Date: 20080515
  Receipt Date: 20080430
  Transmission Date: 20081010
  Serious: Yes (Death)
  Sender: FDA-Public Use
  Company Number: S08-FRA-00683-02

PATIENT
  Weight: 3.165 kg

DRUGS (5)
  1. PROPESS (DINOPROSTONE) [Suspect]
     Dosage: 10 MG ONCE TRANSPLACENTAL
     Route: 064
     Dates: start: 20071206, end: 20071207
  2. SPASFON LYOC (PHLOROGLUCINOL) [Concomitant]
  3. NUBAIN [Concomitant]
  4. MAG 2 (MAGNESIUM PIDOLATE) [Concomitant]
  5. ATARAX [Concomitant]

REACTIONS (13)
  - ANOXIC ENCEPHALOPATHY [None]
  - BRAIN OEDEMA [None]
  - CAESAREAN SECTION [None]
  - DYSKINESIA [None]
  - FOETAL DISTRESS SYNDROME [None]
  - MATERNAL DRUGS AFFECTING FOETUS [None]
  - NEONATAL DISORDER [None]
  - PNEUMOTHORAX [None]
  - PREMATURE RUPTURE OF MEMBRANES [None]
  - PREMATURE SEPARATION OF PLACENTA [None]
  - ULTRASOUND SCAN [None]
  - UTERINE HYPOTONUS [None]
  - WRONG TECHNIQUE IN DRUG USAGE PROCESS [None]
